FAERS Safety Report 24875626 (Version 1)
Quarter: 2025Q1

REPORT INFORMATION
  Report Type: Spontaneous
  Country: AU (occurrence: AU)
  Receive Date: 20250122
  Receipt Date: 20250122
  Transmission Date: 20250409
  Serious: Yes (Other)
  Sender: CARA THERAPEUTICS
  Company Number: AU-BEH-2025191821

PATIENT
  Age: 84 Year
  Sex: Male

DRUGS (1)
  1. KORSUVA [Suspect]
     Active Substance: DIFELIKEFALIN ACETATE
     Indication: Product used for unknown indication

REACTIONS (2)
  - Seizure [Unknown]
  - Product dose omission issue [Unknown]
